FAERS Safety Report 10461168 (Version 1)
Quarter: 2014Q3

REPORT INFORMATION
  Report Type: Spontaneous
  Country: US (occurrence: None)
  Receive Date: 20140917
  Receipt Date: 20140917
  Transmission Date: 20150326
  Serious: Yes (Disabling)
  Sender: FDA-Public Use
  Company Number: None

PATIENT
  Age: 20 Year
  Sex: Female
  Weight: 63.5 kg

DRUGS (1)
  1. DEPO-PROVERA [Suspect]
     Active Substance: MEDROXYPROGESTERONE ACETATE
     Indication: CONTRACEPTION
     Dosage: 1 INJECTION EVERY THREE MONTHS INTO THE MUSCLE
     Route: 030
     Dates: start: 20101202, end: 20120301

REACTIONS (4)
  - Family stress [None]
  - Therapy cessation [None]
  - Infertility [None]
  - Menstruation irregular [None]

NARRATIVE: CASE EVENT DATE: 20101213
